FAERS Safety Report 8495341-5 (Version None)
Quarter: 2012Q3

REPORT INFORMATION
  Report Type: 
  Country: None (occurrence: None)
  Receive Date: 20120709
  Receipt Date: 20120703
  Transmission Date: 20120928
  Serious: Yes (Hospitalization)
  Sender: FDA-Public Use
  Company Number: US-BAYER-2012-040182

PATIENT
  Age: 34 Year
  Sex: Female

DRUGS (9)
  1. DECADRON [Concomitant]
     Indication: PAIN IN EXTREMITY
  2. DECADRON [Concomitant]
     Indication: INFLAMMATION
     Dosage: UNK
     Dates: start: 20040101
  3. ATIVAN [Concomitant]
     Dosage: 0.5 MG, HS
     Route: 048
     Dates: start: 20040202
  4. LORTAB [Concomitant]
     Indication: PAIN
     Dosage: 5 MG 1 OR 2 EVERY 4-6 HOUR PRN
     Dates: start: 20040202
  5. DIOVAN HCT [Concomitant]
     Indication: BLOOD PRESSURE MANAGEMENT
     Dosage: 80MG / 12.5 MG DAILY
  6. MULTI-VITAMIN [Concomitant]
  7. YAZ [Suspect]
     Dosage: UNK
  8. YASMIN [Suspect]
  9. HYDROCODONE BITARTRATE + ACETAMINOPHEN [Concomitant]
     Indication: PAIN
     Dosage: 5/500 MG

REACTIONS (4)
  - INJURY [None]
  - DEEP VEIN THROMBOSIS [None]
  - EMOTIONAL DISTRESS [None]
  - PAIN [None]
